FAERS Safety Report 8507418 (Version 7)
Quarter: 2013Q3

REPORT INFORMATION
  Report Type: Spontaneous
  Country: US (occurrence: US)
  Receive Date: 20120412
  Receipt Date: 20130717
  Transmission Date: 20140515
  Serious: Yes (Hospitalization, Other)
  Sender: FDA-Public Use
  Company Number: US-ASTRAZENECA-2011SE40512

PATIENT
  Age: 74 Year
  Sex: Female
  Weight: 81.2 kg

DRUGS (15)
  1. NEXIUM [Suspect]
     Indication: GASTROOESOPHAGEAL REFLUX DISEASE
     Route: 048
  2. NEXIUM [Suspect]
     Indication: GASTROOESOPHAGEAL REFLUX DISEASE
     Route: 048
  3. NEXIUM [Suspect]
     Indication: GASTROOESOPHAGEAL REFLUX DISEASE
     Route: 048
  4. NEXIUM [Suspect]
     Indication: GASTROOESOPHAGEAL REFLUX DISEASE
     Route: 048
  5. PRILOSEC OTC [Suspect]
     Route: 048
  6. SEROQUEL XR [Suspect]
     Route: 048
  7. LORAZEPAM [Concomitant]
  8. AMLODIPINE [Concomitant]
     Indication: HYPERTENSION
  9. VIT E [Concomitant]
  10. VIT D [Concomitant]
  11. IBUPROFEN [Concomitant]
     Dosage: AS REQUIRED
  12. TYLENOL EXTRA-STRENGTH [Concomitant]
     Indication: PAIN
  13. TYLENOL EXTRA-STRENGTH [Concomitant]
     Indication: PYREXIA
  14. ASPIRIN (BAYER) [Concomitant]
     Indication: CARDIAC DISORDER
  15. BENZONATATE [Concomitant]
     Indication: COUGH

REACTIONS (31)
  - Cataract [Unknown]
  - Rib fracture [Unknown]
  - Malaise [Unknown]
  - Thrombosis [Unknown]
  - Pain in jaw [Unknown]
  - Gastrooesophageal reflux disease [Unknown]
  - Emotional disorder [Unknown]
  - Abdominal distension [Unknown]
  - Anxiety [Unknown]
  - Nasal mucosal disorder [Unknown]
  - Sinusitis [Unknown]
  - Aphagia [Unknown]
  - Eating disorder [Unknown]
  - Neck pain [Unknown]
  - Musculoskeletal pain [Unknown]
  - Back pain [Unknown]
  - Toothache [Unknown]
  - Hypertension [Unknown]
  - Asthenia [Unknown]
  - Dyspnoea [Unknown]
  - Weight increased [Unknown]
  - Insomnia [Unknown]
  - Epigastric discomfort [Unknown]
  - Abdominal pain upper [Unknown]
  - Rash [Unknown]
  - Nausea [Unknown]
  - Headache [Unknown]
  - Vomiting [Unknown]
  - Dizziness [Unknown]
  - Drug dose omission [Unknown]
  - Off label use [Unknown]
